FAERS Safety Report 20140127 (Version 2)
Quarter: 2021Q4

REPORT INFORMATION
  Report Type: Spontaneous
  Country: JP (occurrence: JP)
  Receive Date: 20211202
  Receipt Date: 20211206
  Transmission Date: 20220303
  Serious: Yes (Other)
  Sender: FDA-Public Use
  Company Number: JP-SA-2021SA397488

PATIENT
  Age: 21 Year
  Sex: Female

DRUGS (1)
  1. DUPIXENT [Suspect]
     Active Substance: DUPILUMAB
     Indication: Dermatitis atopic
     Dosage: UNK
     Route: 058

REACTIONS (5)
  - Systemic lupus erythematosus [Unknown]
  - Arthralgia [Recovered/Resolved]
  - Diffuse alopecia [Recovered/Resolved]
  - Atypical pneumonia [Recovered/Resolved]
  - Herpes zoster [Unknown]
